FAERS Safety Report 14126464 (Version 2)
Quarter: 2018Q2

REPORT INFORMATION
  Report Type: Spontaneous
  Country: US (occurrence: US)
  Receive Date: 20171025
  Receipt Date: 20180627
  Transmission Date: 20180711
  Serious: No
  Sender: FDA-Public Use
  Company Number: US-009507513-1710USA007006

PATIENT
  Sex: Female

DRUGS (2)
  1. EMEND [Suspect]
     Active Substance: APREPITANT
     Indication: NAUSEA
     Dosage: SINGLE DOSE
     Route: 042
  2. EMEND [Suspect]
     Active Substance: APREPITANT
     Indication: VOMITING

REACTIONS (1)
  - Pain [Recovered/Resolved]
